FAERS Safety Report 7916674-4 (Version None)
Quarter: 2011Q4

REPORT INFORMATION
  Report Type: 
  Country: None (occurrence: None)
  Receive Date: 20111116
  Receipt Date: 20111104
  Transmission Date: 20120403
  Serious: Yes (Hospitalization, Disabling, Other)
  Sender: FDA-Public Use
  Company Number: US-BAYER-201036078NA

PATIENT
  Age: 37 Year
  Sex: Female
  Weight: 55.329 kg

DRUGS (3)
  1. YAZ [Suspect]
     Indication: CONTRACEPTION
     Dosage: UNK
     Dates: start: 20081228, end: 20090125
  2. CLARITIN [Concomitant]
  3. ACETAMINOPHEN [Concomitant]

REACTIONS (9)
  - VISUAL IMPAIRMENT [None]
  - MOBILITY DECREASED [None]
  - ANXIETY [None]
  - HEMIPARESIS [None]
  - CEREBROVASCULAR ACCIDENT [None]
  - DEPRESSION [None]
  - HEADACHE [None]
  - HYPOAESTHESIA [None]
  - BLINDNESS UNILATERAL [None]
